FAERS Safety Report 10901848 (Version 1)
Quarter: 2015Q1

REPORT INFORMATION
  Report Type: Spontaneous
  Country: FR (occurrence: FR)
  Receive Date: 20150310
  Receipt Date: 20150310
  Transmission Date: 20150721
  Serious: Yes (Death, Life-Threatening, Other)
  Sender: FDA-Public Use
  Company Number: FR-GLAXOSMITHKLINE-FR2015GSK030747

PATIENT
  Age: 29 Year
  Sex: Female

DRUGS (5)
  1. ARACYTINE [Suspect]
     Active Substance: CYTARABINE
     Indication: STEM CELL TRANSPLANT
     Dosage: 1500 MG, BID
     Dates: start: 20150131, end: 20150203
  2. ETOPOSIDE. [Suspect]
     Active Substance: ETOPOSIDE
     Indication: STEM CELL TRANSPLANT
     Dosage: 600 MG, 1D
     Route: 042
     Dates: start: 20150131, end: 20150203
  3. LEVACT (BENDAMUSTINE HYDROCHLORIDE) [Suspect]
     Active Substance: BENDAMUSTINE HYDROCHLORIDE
     Indication: STEM CELL TRANSPLANT
     Dosage: 300 MG, 1D
     Route: 042
     Dates: start: 20150130, end: 20150131
  4. PRIVIGEN [Suspect]
     Active Substance: HUMAN IMMUNOGLOBULIN G
     Indication: PRODUCT USED FOR UNKNOWN INDICATION
     Dosage: 20 G, SINGLE
     Route: 042
     Dates: start: 20150204, end: 20150204
  5. ALKERAN [Suspect]
     Active Substance: MELPHALAN
     Indication: STEM CELL TRANSPLANT
     Dosage: 220 MG, 1D
     Route: 042
     Dates: start: 20150204, end: 20150204

REACTIONS (6)
  - Cardiac tamponade [Fatal]
  - Pericardial effusion [Fatal]
  - Acute kidney injury [Not Recovered/Not Resolved]
  - Cardiogenic shock [Not Recovered/Not Resolved]
  - Septic shock [Fatal]
  - Hypertriglyceridaemia [Not Recovered/Not Resolved]

NARRATIVE: CASE EVENT DATE: 20150203
